FAERS Safety Report 7387039-1 (Version None)
Quarter: 2011Q1

REPORT INFORMATION
  Report Type: 
  Country: None (occurrence: None)
  Receive Date: 20110331
  Receipt Date: 20100921
  Transmission Date: 20110831
  Serious: Yes (Hospitalization, Other)
  Sender: FDA-Public Use
  Company Number: US-BAYER-201032465NA

PATIENT
  Sex: Female
  Weight: 74.83 kg

DRUGS (5)
  1. BENADRYL N [Concomitant]
  2. SYNTHROID [Concomitant]
     Dosage: UNK UNK, QD
  3. CELEXA [Concomitant]
  4. YASMIN [Suspect]
     Indication: OVARIAN CYST
     Route: 048
  5. ZOFRAN [Concomitant]

REACTIONS (11)
  - CEREBRAL HAEMORRHAGE [None]
  - EMBOLISM ARTERIAL [None]
  - CEREBRAL THROMBOSIS [None]
  - GALLBLADDER DISORDER [None]
  - HEPATIC ADENOMA [None]
  - BENIGN HEPATIC NEOPLASM [None]
  - HYPERTENSION [None]
  - PULMONARY EMBOLISM [None]
  - MYOCARDIAL INFARCTION [None]
  - THROMBOPHLEBITIS [None]
  - DEEP VEIN THROMBOSIS [None]
